FAERS Safety Report 6537509-0 (Version None)
Quarter: 2010Q1

REPORT INFORMATION
  Report Type: 
  Country: None (occurrence: None)
  Receive Date: 20100114
  Receipt Date: 20100112
  Transmission Date: 20100710
  Serious: Yes (Hospitalization)
  Sender: FDA-Public Use
  Company Number: JP-ELI_LILLY_AND_COMPANY-JP200912003521

PATIENT
  Age: 60 Year
  Sex: Male

DRUGS (12)
  1. GEMZAR [Suspect]
     Indication: PANCREATIC CARCINOMA
     Dosage: 1000 MG/M2, UNK
     Route: 042
  2. DECADRON /00016002/ [Concomitant]
     Dosage: UNK, UNK
     Route: 042
  3. SOLITA-T3 [Concomitant]
     Route: 042
  4. ROPION [Concomitant]
     Route: 042
  5. NASEA-OD [Concomitant]
     Route: 048
  6. PRIMPERAN /00041901/ [Concomitant]
     Route: 048
  7. OXYCONTIN [Concomitant]
     Route: 048
  8. OXYNORM [Concomitant]
     Route: 048
  9. MAGMITT [Concomitant]
     Route: 048
  10. HYPEN [Concomitant]
     Dosage: UNK, UNK
     Route: 048
  11. LANSOPRAZOLE [Concomitant]
     Route: 048
  12. ALOSENN                            /00476901/ [Concomitant]
     Route: 048

REACTIONS (2)
  - NASAL DISCOMFORT [None]
  - PAROSMIA [None]
